FAERS Safety Report 8623532-9 (Version None)
Quarter: 2012Q3

REPORT INFORMATION
  Report Type: 
  Country: None (occurrence: None)
  Receive Date: 20120827
  Receipt Date: 20120820
  Transmission Date: 20120928
  Serious: Yes (Hospitalization)
  Sender: FDA-Public Use
  Company Number: NL-PFIZER INC-2012204582

PATIENT
  Sex: Female

DRUGS (7)
  1. HYZAAR [Concomitant]
     Indication: HYPERTENSION
     Dosage: UNK
     Dates: start: 20100114
  2. GENOTROPIN [Suspect]
     Dosage: 0.3 MG, 7/WK
     Route: 058
     Dates: start: 20110105
  3. COZAAR [Concomitant]
     Indication: HYPERTENSION
     Dosage: UNK
     Dates: start: 20030924
  4. SIMVASTATIN [Concomitant]
     Dosage: UNK
     Dates: start: 20071115
  5. HYDROCORTISONE [Concomitant]
     Indication: BLOOD CORTICOTROPHIN DECREASED
     Dosage: UNK
     Dates: start: 20071213
  6. AMLODIPINE [Concomitant]
     Indication: HYPERTENSION
     Dosage: UNK
     Dates: start: 20090618
  7. LEVOTHYROXINE SODIUM [Concomitant]
     Indication: HYPOTHYROIDISM
     Dosage: UNK
     Dates: start: 20070525

REACTIONS (1)
  - INFECTED CYST [None]
